FAERS Safety Report 24013621 (Version 1)
Quarter: 2024Q2

REPORT INFORMATION
  Report Type: Spontaneous
  Country: US (occurrence: US)
  Receive Date: 20240626
  Receipt Date: 20240626
  Transmission Date: 20240716
  Serious: Yes (Other)
  Sender: FDA-Public Use
  Company Number: US-MLMSERVICE-20240510-PI055101-00271-1

PATIENT
  Age: 4 Year
  Sex: Female

DRUGS (1)
  1. PREDNISONE [Suspect]
     Active Substance: PREDNISONE
     Indication: Product used for unknown indication
     Dosage: UNK (SHORT COURSE)
     Route: 048

REACTIONS (4)
  - Central serous chorioretinopathy [Unknown]
  - Condition aggravated [Recovered/Resolved]
  - Retinal pigment epitheliopathy [Recovered/Resolved]
  - Subretinal fluid [Recovered/Resolved]
